FAERS Safety Report 10036273 (Version 3)
Quarter: 2014Q3

REPORT INFORMATION
  Report Type: Spontaneous
  Country: US (occurrence: US)
  Receive Date: 20140325
  Receipt Date: 20140808
  Transmission Date: 20150326
  Serious: Yes (Hospitalization, Other)
  Sender: FDA-Public Use
  Company Number: US-INCYTE CORPORATION-2014IN000721

PATIENT
  Age: 73 Year
  Sex: Male

DRUGS (3)
  1. JAKAFI [Suspect]
     Active Substance: RUXOLITINIB
     Indication: SPLENOMEGALY
     Dosage: 10 MG, BID
     Route: 048
  2. JAKAFI [Suspect]
     Active Substance: RUXOLITINIB
     Indication: THROMBOCYTOSIS
  3. JAKAFI [Suspect]
     Active Substance: RUXOLITINIB
     Indication: MYELOFIBROSIS
     Dosage: 20 MG, BID
     Route: 048
     Dates: start: 20131011, end: 20140227

REACTIONS (5)
  - Anaemia [Not Recovered/Not Resolved]
  - Drug ineffective [Unknown]
  - Leukocytosis [Unknown]
  - Subdural haematoma [Recovered/Resolved]
  - Blood product transfusion dependent [Unknown]

NARRATIVE: CASE EVENT DATE: 20140226
